APPROVED DRUG PRODUCT: TESTIM
Active Ingredient: TESTOSTERONE
Strength: 50MG/5GM PACKET
Dosage Form/Route: GEL;TRANSDERMAL
Application: N021454 | Product #001 | TE Code: AB2
Applicant: ENDO OPERATIONS LTD
Approved: Oct 31, 2002 | RLD: Yes | RS: Yes | Type: RX